FAERS Safety Report 8433281-8 (Version None)
Quarter: 2012Q2

REPORT INFORMATION
  Report Type: 
  Country: None (occurrence: None)
  Receive Date: 20120613
  Receipt Date: 20120608
  Transmission Date: 20120825
  Serious: Yes (Hospitalization)
  Sender: FDA-Public Use
  Company Number: AU-ROCHE-1077804

PATIENT
  Sex: Female

DRUGS (1)
  1. LUCENTIS [Suspect]
     Indication: AGE-RELATED MACULAR DEGENERATION
     Route: 050
     Dates: start: 20120216

REACTIONS (6)
  - HYPERHIDROSIS [None]
  - DIARRHOEA [None]
  - TYPE 2 DIABETES MELLITUS [None]
  - HEADACHE [None]
  - NAUSEA [None]
  - DIZZINESS [None]
